FAERS Safety Report 7917449-2 (Version None)
Quarter: 2011Q4

REPORT INFORMATION
  Report Type: 
  Country: None (occurrence: None)
  Receive Date: 20111114
  Receipt Date: 20111108
  Transmission Date: 20120403
  Serious: Yes (Hospitalization, Other)
  Sender: FDA-Public Use
  Company Number: 2010SP009085

PATIENT
  Age: 22 Year
  Sex: Female
  Weight: 94.2 kg

DRUGS (3)
  1. INTRON A [Suspect]
     Indication: MALIGNANT MELANOMA
     Dosage: 39 MIU; IV; IV
     Route: 042
     Dates: start: 20100208, end: 20100208
  2. INTRON A [Suspect]
     Indication: MALIGNANT MELANOMA
     Dosage: 39 MIU; IV; IV
     Route: 042
     Dates: start: 20100209
  3. ACETAMINOPHEN [Concomitant]

REACTIONS (8)
  - OROPHARYNGEAL PAIN [None]
  - HEADACHE [None]
  - NAUSEA [None]
  - VOMITING [None]
  - THROAT TIGHTNESS [None]
  - METASTATIC MALIGNANT MELANOMA [None]
  - TACHYCARDIA [None]
  - METASTASES TO LYMPH NODES [None]
